FAERS Safety Report 8394518-7 (Version None)
Quarter: 2012Q2

REPORT INFORMATION
  Report Type: 
  Country: None (occurrence: None)
  Receive Date: 20120530
  Receipt Date: 20120517
  Transmission Date: 20120825
  Serious: Yes (Hospitalization, Other)
  Sender: FDA-Public Use
  Company Number: US-ELI_LILLY_AND_COMPANY-US201103004090

PATIENT
  Sex: Female

DRUGS (13)
  1. FORTEO [Suspect]
     Dosage: 20 UG, QD
     Route: 065
  2. FORTEO [Suspect]
     Dosage: 20 UG, QD
  3. STOOL SOFTENER [Concomitant]
  4. FORTEO [Suspect]
     Indication: OSTEOPOROSIS
     Dosage: 20 UG, QD
     Route: 065
     Dates: start: 20110201
  5. CALCIUM [Concomitant]
     Dosage: 600 MG, UNK
  6. ARAVA [Concomitant]
  7. FORTEO [Suspect]
     Dosage: 20 UG, QD
  8. PREDNISONE TAB [Concomitant]
     Dosage: 2.5 MG, UNK
  9. ANTACIDS [Concomitant]
  10. MULTI-VITAMIN [Concomitant]
  11. VICODIN [Concomitant]
     Indication: PAIN
     Dosage: 500 MG, UNK
  12. BENICAR [Concomitant]
     Indication: BLOOD PRESSURE
  13. FORTEO [Suspect]
     Dosage: 20 UG, QD

REACTIONS (12)
  - MUSCLE SPASMS [None]
  - NAUSEA [None]
  - INJECTION SITE PAIN [None]
  - INFLUENZA [None]
  - MALAISE [None]
  - OESOPHAGEAL STENOSIS [None]
  - RIB FRACTURE [None]
  - VOMITING [None]
  - ABDOMINAL DISCOMFORT [None]
  - ASTHENIA [None]
  - PNEUMONIA [None]
  - FALL [None]
